FAERS Safety Report 5328198-1 (Version None)
Quarter: 2007Q2

REPORT INFORMATION
  Report Type: 
  Country: None (occurrence: None)
  Receive Date: 20070515
  Receipt Date: 20070430
  Transmission Date: 20071010
  Serious: Yes (Hospitalization)
  Sender: FDA-Public Use
  Company Number: 2007S1003129

PATIENT
  Age: 75 Year
  Sex: Male

DRUGS (5)
  1. TERAZOSIN HYDROCHLORIDE ANHYDROUS CAPSULES (5 MG) [Suspect]
     Indication: PROSTATE EXAMINATION ABNORMAL
     Dosage: 5 MG DAILY ORAL
     Route: 048
     Dates: end: 20070329
  2. BISOPROLOL FUMARATE AND HYDROCHLOROTHIAZIDE [Concomitant]
  3. ATORVASTATIN CALCIUM [Concomitant]
  4. ASPIRIN [Concomitant]
  5. LISINOPRIL [Concomitant]

REACTIONS (9)
  - BLOOD PRESSURE DECREASED [None]
  - BLOOD PRESSURE INCREASED [None]
  - CHEST PAIN [None]
  - DIZZINESS [None]
  - HEADACHE [None]
  - HEART RATE IRREGULAR [None]
  - PALPITATIONS [None]
  - POLLAKIURIA [None]
  - VENTRICULAR EXTRASYSTOLES [None]
